FAERS Safety Report 11079554 (Version 1)
Quarter: 2015Q2

REPORT INFORMATION
  Report Type: Spontaneous
  Country: FR (occurrence: FR)
  Receive Date: 20150430
  Receipt Date: 20150430
  Transmission Date: 20150821
  Serious: Yes (Death, Hospitalization, Other)
  Sender: FDA-Public Use
  Company Number: FR-PFIZER INC-2015145210

PATIENT
  Age: 67 Year
  Sex: Female

DRUGS (8)
  1. SUTENT [Suspect]
     Active Substance: SUNITINIB MALATE
     Indication: RENAL CELL CARCINOMA
     Dosage: 50 MG, CYCLIC (2 WEEKS ON/1 WEEK OFF)
     Route: 048
     Dates: start: 20141006, end: 20141019
  2. OFLOCET [Suspect]
     Active Substance: OFLOXACIN
     Indication: PYELONEPHRITIS ACUTE
     Dosage: 200 MG, 2X/DAY
     Route: 048
     Dates: start: 20141226, end: 20150102
  3. KARDEGIC [Concomitant]
     Active Substance: ASPIRIN LYSINE
     Dosage: 160 MG, DAILY
  4. SUTENT [Suspect]
     Active Substance: SUNITINIB MALATE
     Dosage: 50 MG, CYCLIC (2 WEEKS ON/1 WEEK OFF)
     Route: 048
     Dates: start: 20141027, end: 20141109
  5. SUTENT [Suspect]
     Active Substance: SUNITINIB MALATE
     Dosage: 50 MG, CYCLIC (2 WEEKS ON/1 WEEK OFF)
     Route: 048
     Dates: start: 20141117, end: 20141130
  6. COVERSYL [Concomitant]
     Active Substance: PERINDOPRIL
     Dosage: 4 MG, DAILY
  7. PRAVASTATIN [Concomitant]
     Active Substance: PRAVASTATIN\PRAVASTATIN SODIUM
     Dosage: 20 MG, DAILY
  8. SUTENT [Suspect]
     Active Substance: SUNITINIB MALATE
     Dosage: 50 MG, CYCLIC (2 WEEKS ON/1 WEEK OFF)
     Route: 048
     Dates: start: 20141208, end: 20141221

REACTIONS (14)
  - Dysuria [Unknown]
  - Bradycardia [Unknown]
  - Pyrexia [Unknown]
  - Vomiting [Unknown]
  - Asthenia [Unknown]
  - Malaise [Unknown]
  - Hypokalaemia [Fatal]
  - Hypotension [Unknown]
  - Mucosal inflammation [Unknown]
  - Oedema peripheral [Unknown]
  - Electrocardiogram QT prolonged [Fatal]
  - General physical health deterioration [Unknown]
  - Diarrhoea [Fatal]
  - Cardio-respiratory arrest [Recovered/Resolved]

NARRATIVE: CASE EVENT DATE: 20141006
